FAERS Safety Report 15220767 (Version 2)
Quarter: 2018Q3

REPORT INFORMATION
  Report Type: Spontaneous
  Country: DE (occurrence: DE)
  Receive Date: 20180731
  Receipt Date: 20180807
  Transmission Date: 20181010
  Serious: Yes (Life-Threatening, Other)
  Sender: FDA-Public Use
  Company Number: DE-DRREDDYS-USA/GER/18/0102541

PATIENT
  Age: 23 Year
  Sex: Female

DRUGS (5)
  1. QUETIAPINE. [Suspect]
     Active Substance: QUETIAPINE
     Dosage: THE DOSE WAS INCREASED TO 75 AND THEN TO 150 MG PER DAY (ON DEMAND MEDICATION) FOR 6 MORE DAYS (MAXI
  2. QUETIAPINE. [Suspect]
     Active Substance: QUETIAPINE
     Indication: AGITATION
     Route: 065
  3. PREGABALIN. [Concomitant]
     Active Substance: PREGABALIN
     Indication: PRODUCT USED FOR UNKNOWN INDICATION
     Dosage: DOSE?SLOWLY REDUCED OVER 19 DAYS.
     Route: 065
  4. PREGABALIN. [Concomitant]
     Active Substance: PREGABALIN
  5. QUETIAPINE. [Suspect]
     Active Substance: QUETIAPINE
     Indication: RESTLESSNESS
     Dosage: THE DOSE WAS INCREASED TO 75 AND THEN TO 150 MG PER DAY (ON DEMAND MEDICATION) FOR 6 MORE DAYS (MAXI

REACTIONS (2)
  - Myalgia [Recovered/Resolved]
  - Blood creatine phosphokinase increased [Recovered/Resolved]
